FAERS Safety Report 20696283 (Version 1)
Quarter: 2022Q2

REPORT INFORMATION
  Report Type: Spontaneous
  Country: US (occurrence: None)
  Receive Date: 20220409
  Receipt Date: 20220409
  Transmission Date: 20220721
  Serious: Yes (Hospitalization)
  Sender: FDA-Public Use
  Company Number: None

PATIENT
  Sex: Female
  Weight: 56.6 kg

DRUGS (2)
  1. CARBOPLATIN [Suspect]
     Active Substance: CARBOPLATIN
     Dates: end: 20210813
  2. TAXOL [Suspect]
     Active Substance: PACLITAXEL
     Dates: end: 20210813

REACTIONS (18)
  - Clostridium difficile infection [None]
  - Electrolyte imbalance [None]
  - Hyponatraemia [None]
  - Hypokalaemia [None]
  - Iron deficiency anaemia [None]
  - Pulmonary congestion [None]
  - Pleural effusion [None]
  - Troponin increased [None]
  - Sinus tachycardia [None]
  - Ventricular extrasystoles [None]
  - Electrocardiogram ST segment depression [None]
  - Acute respiratory failure [None]
  - Hypertension [None]
  - Hypomagnesaemia [None]
  - Diarrhoea [None]
  - Rib fracture [None]
  - Colitis [None]
  - Acute left ventricular failure [None]

NARRATIVE: CASE EVENT DATE: 20210910
